FAERS Safety Report 17924586 (Version 3)
Quarter: 2021Q1

REPORT INFORMATION
  Report Type: Spontaneous
  Country: US (occurrence: US)
  Receive Date: 20200622
  Receipt Date: 20210208
  Transmission Date: 20210419
  Serious: Yes (Hospitalization, Other)
  Sender: FDA-Public Use
  Company Number: US-SHIRE-US202019923

PATIENT
  Age: 4 Year
  Sex: Male

DRUGS (8)
  1. GATTEX [Suspect]
     Active Substance: TEDUGLUTIDE\WATER
     Indication: PRODUCT USED FOR UNKNOWN INDICATION
     Dosage: 0.0700 UNK, 1X/DAY:QD
     Route: 058
     Dates: start: 20190807
  2. GATTEX [Suspect]
     Active Substance: TEDUGLUTIDE\WATER
     Dosage: 0.0700 UNK
     Route: 058
     Dates: start: 20190925, end: 20200813
  3. GATTEX [Suspect]
     Active Substance: TEDUGLUTIDE\WATER
     Indication: PRODUCT USED FOR UNKNOWN INDICATION
     Dosage: 0.0700 UNK, 1X/DAY:QD
     Route: 058
     Dates: start: 20190807
  4. GATTEX [Suspect]
     Active Substance: TEDUGLUTIDE\WATER
     Dosage: 0.0700 UNK
     Route: 058
     Dates: start: 20190925, end: 20200813
  5. GATTEX [Suspect]
     Active Substance: TEDUGLUTIDE\WATER
     Indication: PRODUCT USED FOR UNKNOWN INDICATION
     Dosage: 0.0700 UNK, 1X/DAY:QD
     Route: 058
     Dates: start: 20190807
  6. GATTEX [Suspect]
     Active Substance: TEDUGLUTIDE\WATER
     Indication: PRODUCT USED FOR UNKNOWN INDICATION
     Dosage: 0.0700 UNK, 1X/DAY:QD
     Route: 058
     Dates: start: 20190807
  7. GATTEX [Suspect]
     Active Substance: TEDUGLUTIDE\WATER
     Dosage: 0.0700 UNK
     Route: 058
     Dates: start: 20190925, end: 20200813
  8. GATTEX [Suspect]
     Active Substance: TEDUGLUTIDE\WATER
     Dosage: 0.0700 UNK
     Route: 058
     Dates: start: 20190925, end: 20200813

REACTIONS (4)
  - Transplant [Unknown]
  - Therapy interrupted [Unknown]
  - Pyrexia [Recovered/Resolved]
  - Vascular device infection [Recovered/Resolved]

NARRATIVE: CASE EVENT DATE: 20190925
